FAERS Safety Report 7824779-1 (Version None)
Quarter: 2011Q4

REPORT INFORMATION
  Report Type: 
  Country: None (occurrence: None)
  Receive Date: 20111019
  Receipt Date: 20110119
  Transmission Date: 20120403
  Serious: No
  Sender: FDA-Public Use
  Company Number: US-BRISTOL-MYERS SQUIBB COMPANY-15494180

PATIENT
  Age: 75 Year
  Sex: Male

DRUGS (6)
  1. ADVAIR DISKUS 100/50 [Concomitant]
  2. ZOCOR [Concomitant]
  3. GABAPENTIN [Concomitant]
  4. AVALIDE [Suspect]
     Dosage: 1 DF = 150/12.5MG FOR COUPLE OF YRS
  5. FLOMAX [Concomitant]
  6. SINGULAIR [Concomitant]

REACTIONS (1)
  - BLOOD PRESSURE FLUCTUATION [None]
